FAERS Safety Report 21852294 (Version 1)
Quarter: 2023Q1

REPORT INFORMATION
  Report Type: Other
  Country: CN (occurrence: CN)
  Receive Date: 20230112
  Receipt Date: 20230112
  Transmission Date: 20230418
  Serious: Yes (Hospitalization)
  Sender: FDA-Public Use
  Company Number: None

PATIENT
  Age: 68 Year
  Sex: Female
  Weight: 60 kg

DRUGS (4)
  1. CEFIXIME [Suspect]
     Active Substance: CEFIXIME
     Indication: Breast cancer metastatic
     Route: 030
     Dates: start: 20221116, end: 20221116
  2. ABEMACICLIB [Suspect]
     Active Substance: ABEMACICLIB
     Indication: Breast cancer metastatic
     Dosage: 1 TABLET,BID
     Route: 048
     Dates: start: 20221115, end: 20221215
  3. Human granulocyte stimulating factor [Concomitant]
     Route: 058
     Dates: start: 20221215
  4. Human granulocyte stimulating factor [Concomitant]
     Route: 058
     Dates: start: 20221216

REACTIONS (1)
  - Granulocyte count decreased [Recovering/Resolving]

NARRATIVE: CASE EVENT DATE: 20221213
